FAERS Safety Report 6728048-2 (Version None)
Quarter: 2010Q2

REPORT INFORMATION
  Report Type: 
  Country: None (occurrence: None)
  Receive Date: 20100512
  Receipt Date: 20100127
  Transmission Date: 20101027
  Serious: Yes (Other)
  Sender: FDA-Public Use
  Company Number: 1000010550

PATIENT
  Age: 36 Year
  Sex: Female
  Weight: 83.9154 kg

DRUGS (5)
  1. SAVELLA [Suspect]
     Indication: FIBROMYALGIA
     Dosage: 12.5 MG (12.5 MG, 1 IN 1 D),ORAL; 25 MG (12.5 MG, 2 IN 1 D), ORAL; 50 MG (25 MG,2 IN 1 D), ORAL
     Route: 048
     Dates: start: 20091110, end: 20091110
  2. SAVELLA [Suspect]
     Indication: FIBROMYALGIA
     Dosage: 12.5 MG (12.5 MG, 1 IN 1 D),ORAL; 25 MG (12.5 MG, 2 IN 1 D), ORAL; 50 MG (25 MG,2 IN 1 D), ORAL
     Route: 048
     Dates: start: 20091111, end: 20091112
  3. SAVELLA [Suspect]
     Indication: FIBROMYALGIA
     Dosage: 12.5 MG (12.5 MG, 1 IN 1 D),ORAL; 25 MG (12.5 MG, 2 IN 1 D), ORAL; 50 MG (25 MG,2 IN 1 D), ORAL
     Route: 048
     Dates: start: 20091113, end: 20091116
  4. SAVELLA [Suspect]
     Indication: FIBROMYALGIA
     Dosage: 100 MG (50 MG, 2 IN 1 D), ORAL
     Route: 048
     Dates: start: 20091117, end: 20091125
  5. BACLOFEN [Concomitant]

REACTIONS (2)
  - NAUSEA [None]
  - SUICIDAL IDEATION [None]
